FAERS Safety Report 17560710 (Version 6)
Quarter: 2021Q3

REPORT INFORMATION
  Report Type: Report from Study
  Country: MX (occurrence: MX)
  Receive Date: 20200319
  Receipt Date: 20210802
  Transmission Date: 20211014
  Serious: Yes (Other)
  Sender: FDA-Public Use
  Company Number: MX-SA-2020SA035748

PATIENT
  Age: 37 Year
  Sex: Female
  Weight: 74 kg

DRUGS (4)
  1. EUTIROX [Concomitant]
     Active Substance: LEVOTHYROXINE SODIUM
     Indication: THYROID DISORDER
  2. ALEMTUZUMAB [Suspect]
     Active Substance: ALEMTUZUMAB
     Dosage: UNK
     Route: 042
     Dates: start: 20200109
  3. ANAPSIQUE [Concomitant]
     Active Substance: AMITRIPTYLINE HYDROCHLORIDE
     Indication: URINARY TRACT DISORDER
     Route: 065
  4. NUVIGIL [Concomitant]
     Active Substance: ARMODAFINIL

REACTIONS (13)
  - Asthenia [Recovering/Resolving]
  - Micturition urgency [Unknown]
  - Pollakiuria [Unknown]
  - Vessel puncture site inflammation [Recovering/Resolving]
  - Vessel puncture site pain [Recovering/Resolving]
  - Urinary tract disorder [Unknown]
  - Hypothyroidism [Not Recovered/Not Resolved]
  - Thyroid disorder [Unknown]
  - Blood thyroid stimulating hormone increased [Not Recovered/Not Resolved]
  - Immunodeficiency [Not Recovered/Not Resolved]
  - Thyroxine abnormal [Not Recovered/Not Resolved]
  - Vessel puncture site haematoma [Recovering/Resolving]
  - Urinary tract infection [Unknown]

NARRATIVE: CASE EVENT DATE: 20210222
